FAERS Safety Report 4498930-8 (Version None)
Quarter: 2004Q4

REPORT INFORMATION
  Report Type: 
  Country: None (occurrence: None)
  Receive Date: 20041108
  Receipt Date: 20041011
  Transmission Date: 20050328
  Serious: Yes (Hospitalization)
  Sender: FDA-Public Use
  Company Number: 2004-DE-05212GD

PATIENT
  Age: 77 Year
  Sex: Male

DRUGS (1)
  1. TAMSULOSIN (TAMSULOSIN) (NR) (TAMSULOSIN HYDROCHLORIDE) [Suspect]
     Dosage: NR (400 MCG) PO
     Route: 048

REACTIONS (3)
  - COLONIC OBSTRUCTION [None]
  - LARGE INTESTINAL ULCER [None]
  - MEDICATION ERROR [None]
